FAERS Safety Report 6027005-1 (Version None)
Quarter: 2009Q1

REPORT INFORMATION
  Report Type: 
  Country: None (occurrence: None)
  Receive Date: 20090105
  Receipt Date: 20081231
  Transmission Date: 20090719
  Serious: Yes (Life-Threatening, Hospitalization, Other)
  Sender: FDA-Public Use
  Company Number: PHHY2008GB27866

PATIENT
  Sex: Female

DRUGS (5)
  1. CLOZARIL [Suspect]
     Indication: SCHIZOPHRENIA
     Dosage: UNK
     Route: 048
     Dates: start: 20080918
  2. LITHIUM [Concomitant]
     Indication: AFFECTIVE DISORDER
     Dosage: 800 MG DAILY
     Route: 048
  3. VALPROATE SODIUM [Concomitant]
     Indication: AFFECTIVE DISORDER
     Dosage: 1600 MG DAILY
     Route: 048
  4. AMISULPRIDE [Concomitant]
     Indication: PSYCHOTIC DISORDER
     Dosage: 400 MG, BID
  5. LEVOTHYROXINE [Concomitant]
     Dosage: 75 UG DAILY
     Route: 048

REACTIONS (9)
  - ENDOTRACHEAL INTUBATION [None]
  - INFECTION [None]
  - MECHANICAL VENTILATION [None]
  - NEUROPATHY PERIPHERAL [None]
  - NEUTROPHIL COUNT INCREASED [None]
  - RESPIRATORY ARREST [None]
  - SEPSIS [None]
  - TRACHEOSTOMY [None]
  - WHITE BLOOD CELL COUNT INCREASED [None]
